FAERS Safety Report 11101325 (Version 2)
Quarter: 2015Q3

REPORT INFORMATION
  Report Type: Spontaneous
  Country: US (occurrence: US)
  Receive Date: 20150508
  Receipt Date: 20150724
  Transmission Date: 20151125
  Serious: No
  Sender: FDA-Public Use
  Company Number: US-PFIZER INC-2015152632

PATIENT
  Age: 6 Year
  Sex: Male

DRUGS (4)
  1. GENOTROPIN [Suspect]
     Active Substance: SOMATROPIN
     Indication: CONGENITAL MUSCULOSKELETAL ANOMALY
     Dosage: 1 MG, 1X/DAY (5 MG CRT)
     Route: 058
  2. RANITIDINE [Concomitant]
     Active Substance: RANITIDINE\RANITIDINE HYDROCHLORIDE
     Dosage: 0.3 (NO UNIT PROVIDED), 1X/DAY (EACH MORNING)
  3. GENOTROPIN [Suspect]
     Active Substance: SOMATROPIN
     Dosage: 0.3 MG, 1X/DAY
     Dates: start: 201408
  4. GENOTROPIN [Suspect]
     Active Substance: SOMATROPIN
     Indication: NOONAN SYNDROME
     Dosage: 1.0 MG, 1X/DAY (EACH NIGHT)
     Route: 058
     Dates: start: 2011

REACTIONS (2)
  - Malaise [Unknown]
  - Product use issue [Unknown]

NARRATIVE: CASE EVENT DATE: 2011
